FAERS Safety Report 5344280-7 (Version None)
Quarter: 2007Q2

REPORT INFORMATION
  Report Type: 
  Country: None (occurrence: None)
  Receive Date: 20070604
  Receipt Date: 20070523
  Transmission Date: 20071010
  Serious: Yes (Hospitalization)
  Sender: FDA-Public Use
  Company Number: FR-ELI_LILLY_AND_COMPANY-FR200705005731

PATIENT
  Age: 59 Year
  Sex: Male

DRUGS (6)
  1. PROZAC [Suspect]
     Indication: DEPRESSION
     Dosage: 20 MG, UNKNOWN
     Route: 048
     Dates: start: 20061115, end: 20061229
  2. COAPROVEL [Concomitant]
     Dosage: UNK, UNKNOWN
     Route: 048
     Dates: start: 20061115
  3. INDAPAMIDE [Concomitant]
     Indication: HYPERTENSION
     Dosage: 1.5 MG, UNKNOWN
     Route: 048
     Dates: start: 20061115, end: 20061226
  4. TAHOR [Concomitant]
     Indication: LIPID METABOLISM DISORDER
     Dosage: UNK, UNKNOWN
     Route: 048
     Dates: start: 20020615
  5. PLAVIX [Concomitant]
     Indication: THROMBOSIS
     Dosage: 1 D/F, DAILY (1/D)
     Route: 048
  6. XANAX [Concomitant]
     Indication: DEPRESSION
     Dosage: 0.25 MG, UNKNOWN
     Route: 048
     Dates: start: 20061115, end: 20070108

REACTIONS (8)
  - AGITATION [None]
  - ANOREXIA [None]
  - ASTHENIA [None]
  - AVERSION [None]
  - CONFUSIONAL STATE [None]
  - DIARRHOEA [None]
  - HYPONATRAEMIA [None]
  - MANIA [None]
